FAERS Safety Report 9421891 (Version 1)
Quarter: 2013Q3

REPORT INFORMATION
  Report Type: Spontaneous
  Country: US (occurrence: US)
  Receive Date: 20130726
  Receipt Date: 20130726
  Transmission Date: 20140515
  Serious: No
  Sender: FDA-Public Use
  Company Number: US-PFIZER INC-2013217031

PATIENT
  Age: 61 Year
  Sex: Male

DRUGS (5)
  1. LIPITOR [Suspect]
     Indication: BLOOD CHOLESTEROL INCREASED
     Dosage: 10 MG, UNK
     Route: 048
     Dates: start: 1995
  2. CLONAZEPAM [Concomitant]
     Dosage: 2 MG, UNK
  3. HYDROCHLOROTHIAZIDE, VALSARTAN [Concomitant]
     Dosage: [HYDROCHLOROTHIAZIDE 25 MG/VALSARTAN 320 MG]
  4. AMLODIPINE [Concomitant]
     Dosage: 10 MG, UNK
  5. ZOLOFT [Concomitant]
     Dosage: 100 MG, UNK

REACTIONS (3)
  - Influenza like illness [Recovered/Resolved]
  - Myalgia [Recovered/Resolved]
  - Pain [Recovered/Resolved]
